FAERS Safety Report 9196528 (Version 1)
Quarter: 2013Q1

REPORT INFORMATION
  Report Type: Spontaneous
  Country: DK (occurrence: FR)
  Receive Date: 20130328
  Receipt Date: 20130328
  Transmission Date: 20140127
  Serious: Yes (Death)
  Sender: FDA-Public Use
  Company Number: FR-FRI-1000043767

PATIENT
  Age: 84 Year
  Sex: Female

DRUGS (8)
  1. ESCITALOPRAM [Suspect]
     Dosage: 15 MG
     Dates: start: 2011, end: 20130127
  2. KARDEGIC [Suspect]
     Dosage: 75 MG
     Route: 048
     Dates: start: 2011, end: 20130127
  3. MEMANTINE [Concomitant]
     Dosage: 20 MG
     Route: 048
     Dates: end: 20130127
  4. CARDENSIEL [Concomitant]
     Dosage: 1.5 MG
     Route: 048
     Dates: end: 20130127
  5. HEMIGOXINE NATIVELLE [Concomitant]
     Dosage: 0.125 MG
     Route: 048
     Dates: end: 20130127
  6. CRESTOR [Concomitant]
     Dosage: 5 MG
     Route: 048
     Dates: end: 20130127
  7. CHONDROSULF [Concomitant]
     Dosage: 1200 MG
     Route: 048
     Dates: end: 20130127
  8. CACIT VITAMINE D3 [Concomitant]
     Route: 048
     Dates: end: 20130127

REACTIONS (1)
  - Haemorrhagic stroke [Fatal]
